FAERS Safety Report 15989933 (Version 1)
Quarter: 2019Q1

REPORT INFORMATION
  Report Type: Spontaneous
  Country: US (occurrence: US)
  Receive Date: 20190221
  Receipt Date: 20190221
  Transmission Date: 20190418
  Serious: Yes (Hospitalization, Other)
  Sender: FDA-Public Use
  Company Number: US-BAYER-2019-035609

PATIENT
  Sex: Female
  Weight: 72.57 kg

DRUGS (12)
  1. DILAUDID [Concomitant]
     Active Substance: HYDROMORPHONE HYDROCHLORIDE
  2. BAYER LOW DOSE [Suspect]
     Active Substance: ASPIRIN
  3. CELECOXIB. [Concomitant]
     Active Substance: CELECOXIB
     Dosage: UNK
     Dates: start: 20170927
  4. OXYCONTIN [Concomitant]
     Active Substance: OXYCODONE HYDROCHLORIDE
  5. HYDROMORPHONE [Concomitant]
     Active Substance: HYDROMORPHONE
  6. MORPHINE [Concomitant]
     Active Substance: MORPHINE
  7. SUMATRIPTAN. [Concomitant]
     Active Substance: SUMATRIPTAN
     Indication: MIGRAINE
     Dosage: 500 MG(1 EVERY TWO HOURS BY MOUTH AS NEEDED MAXIMUM 200MG IN 24 HOURS)
  8. FAMOTIDINE. [Concomitant]
     Active Substance: FAMOTIDINE
     Dosage: UNK(20MG TABLETS BY MOUTH TWICE DAILY0
     Dates: start: 20170928
  9. MELOXICAM. [Concomitant]
     Active Substance: MELOXICAM
  10. TRIAMTERENE. [Concomitant]
     Active Substance: TRIAMTERENE
     Indication: FLUID RETENTION
     Dosage: UNK(37.5/25MG, 0.5-1 EVERY OTHER DAY)
  11. XARELTO [Concomitant]
     Active Substance: RIVAROXABAN
     Indication: COAGULOPATHY
     Dosage: 10 MG(10MG TABLETS BY MOUTH ONCE DAILY)
     Dates: start: 20170928
  12. OXYCODONE [Concomitant]
     Active Substance: OXYCODONE

REACTIONS (1)
  - Gastric haemorrhage [None]
